FAERS Safety Report 6079229-5 (Version None)
Quarter: 2009Q1

REPORT INFORMATION
  Report Type: 
  Country: None (occurrence: None)
  Receive Date: 20090216
  Receipt Date: 20090204
  Transmission Date: 20090719
  Serious: Yes (Other)
  Sender: FDA-Public Use
  Company Number: US-AMGEN-US327194

PATIENT
  Sex: Female

DRUGS (10)
  1. NPLATE [Suspect]
     Indication: IDIOPATHIC THROMBOCYTOPENIC PURPURA
     Dates: start: 20081104
  2. POTASSIUM CHLORIDE [Concomitant]
  3. HYDROCHLOROTHIAZIDE [Concomitant]
  4. SOTALOL HCL [Concomitant]
  5. HYTRIN [Concomitant]
  6. ZESTRIL [Concomitant]
  7. XANAX [Concomitant]
  8. FOSAMAX [Concomitant]
  9. AMBIEN [Concomitant]
  10. PRILOSEC [Concomitant]

REACTIONS (2)
  - PLATELET COUNT DECREASED [None]
  - THERAPEUTIC RESPONSE DECREASED [None]
